FAERS Safety Report 7229646-2 (Version None)
Quarter: 2011Q1

REPORT INFORMATION
  Report Type: 
  Country: None (occurrence: None)
  Receive Date: 20110117
  Receipt Date: 20110106
  Transmission Date: 20110831
  Serious: Yes (Other)
  Sender: FDA-Public Use
  Company Number: PHHY2011US01628

PATIENT
  Sex: Female

DRUGS (3)
  1. VITAMINS SUPPLEMENT [Concomitant]
  2. PROGESTERONE [Concomitant]
  3. VIVELLE-DOT [Suspect]
     Dosage: 0.05 MG, TWICE PER WEEK
     Route: 062
     Dates: start: 20101101, end: 20110106

REACTIONS (1)
  - PETECHIAE [None]
